FAERS Safety Report 5125337-2 (Version None)
Quarter: 2006Q4

REPORT INFORMATION
  Report Type: 
  Country: None (occurrence: None)
  Receive Date: 20061006
  Receipt Date: 20060926
  Transmission Date: 20070319
  Serious: Yes (Death, Other)
  Sender: FDA-Public Use
  Company Number: 2006080203

PATIENT
  Age: 69 Year
  Sex: Female

DRUGS (11)
  1. NEURONTIN [Suspect]
     Indication: BACK PAIN
     Dosage: ORAL
     Route: 048
     Dates: start: 20030428
  2. FLEXERIL (CYCLOBENAZAPRINE HYDROCHLORIDE) [Concomitant]
  3. NAPROSYN [Concomitant]
  4. RESTORIL [Concomitant]
  5. ELAVIL [Concomitant]
  6. OXYCODONE HCL [Concomitant]
  7. DURAGESIC-100 [Concomitant]
  8. ALL OTHER THERAPEUTIC PRODUCTS (ALL OTHER THERAPEUTIC PRODUCTS) [Concomitant]
  9. PREVACID [Concomitant]
  10. MORPHINE SULFATE [Concomitant]
  11. NAPROXEN [Concomitant]

REACTIONS (3)
  - ANXIETY [None]
  - COMPLETED SUICIDE [None]
  - GUN SHOT WOUND [None]
